FAERS Safety Report 15383869 (Version 2)
Quarter: 2018Q4

REPORT INFORMATION
  Report Type: Spontaneous
  Country: TR (occurrence: TR)
  Receive Date: 20180913
  Receipt Date: 20181016
  Transmission Date: 20190204
  Serious: No
  Sender: FDA-Public Use
  Company Number: TR-BAXTER-2018BAX023386

PATIENT
  Age: 52 Year
  Sex: Male
  Weight: 88 kg

DRUGS (2)
  1. EXTRANEAL [Suspect]
     Active Substance: CALCIUM CHLORIDE\ICODEXTRIN\MAGNESIUM CHLORIDE\SODIUM CHLORIDE\SODIUM LACTATE
     Indication: PERITONEAL DIALYSIS
     Route: 033
     Dates: start: 201712
  2. PHYSIONEAL 40 %1.36 CLEARFLEX PERITON DIYALIZ COZELTISI [Suspect]
     Active Substance: CALCIUM CL\DEXTROSE\MAGNESIUM CL\SODIUM BICAR\SODIUM CL\SODIUM LACT
     Indication: PERITONEAL DIALYSIS
     Route: 033
     Dates: start: 201712

REACTIONS (1)
  - Oedema [Recovered/Resolved]
